FAERS Safety Report 18037806 (Version 2)
Quarter: 2020Q3

REPORT INFORMATION
  Report Type: Report from Study
  Country: JP (occurrence: JP)
  Receive Date: 20200717
  Receipt Date: 20200826
  Transmission Date: 20201103
  Serious: Yes (Death)
  Sender: FDA-Public Use
  Company Number: JP-ASTRAZENECA-2020SE88779

PATIENT
  Age: 88 Year
  Sex: Female
  Weight: 42 kg

DRUGS (11)
  1. SPIRONOLACTONE. [Concomitant]
     Active Substance: SPIRONOLACTONE
     Indication: MYOCARDIAL INFARCTION
     Route: 050
     Dates: end: 20190301
  2. AZOSEMIDE [Concomitant]
     Active Substance: AZOSEMIDE
     Indication: MYOCARDIAL INFARCTION
     Route: 050
     Dates: end: 20190301
  3. BRILINTA [Suspect]
     Active Substance: TICAGRELOR
     Indication: ACUTE MYOCARDIAL INFARCTION
     Route: 048
     Dates: start: 20190226, end: 20190301
  4. ASPIRIN. [Suspect]
     Active Substance: ASPIRIN
     Route: 065
     Dates: start: 20190223, end: 20190301
  5. SAMSCA [Concomitant]
     Active Substance: TOLVAPTAN
     Indication: MYOCARDIAL INFARCTION
     Route: 050
     Dates: end: 20190301
  6. CRESTOR [Concomitant]
     Active Substance: ROSUVASTATIN CALCIUM
     Route: 050
     Dates: start: 20190214, end: 20190301
  7. CARVEDILOL. [Concomitant]
     Active Substance: CARVEDILOL
     Indication: MYOCARDIAL INFARCTION
     Route: 048
     Dates: start: 20190123, end: 20190301
  8. CRESTOR TABLETS 5MG [Concomitant]
     Route: 050
     Dates: end: 20190301
  9. NEXIUM CAPSULES 20MG [Concomitant]
     Indication: PROPHYLAXIS
     Route: 050
     Dates: end: 20190301
  10. ZETIA [Concomitant]
     Active Substance: EZETIMIBE
     Route: 050
     Dates: end: 20190301
  11. ASPIRIN. [Suspect]
     Active Substance: ASPIRIN
     Route: 065
     Dates: start: 20190123, end: 20190219

REACTIONS (3)
  - Diverticulum intestinal haemorrhagic [Fatal]
  - Gastrointestinal perforation [Fatal]
  - Peritonitis [Fatal]

NARRATIVE: CASE EVENT DATE: 20190227
